FAERS Safety Report 17881901 (Version 3)
Quarter: 2020Q2

REPORT INFORMATION
  Report Type: Spontaneous
  Country: CN (occurrence: CN)
  Receive Date: 20200610
  Receipt Date: 20200626
  Transmission Date: 20200714
  Serious: Yes (Hospitalization, Other)
  Sender: FDA-Public Use
  Company Number: CN-PFIZER INC-2020222552

PATIENT
  Age: 34 Year
  Sex: Male
  Weight: 68 kg

DRUGS (12)
  1. DEXAMETHASONE. [Concomitant]
     Active Substance: DEXAMETHASONE
     Indication: DIZZINESS
     Dosage: 5 MG
     Dates: start: 2019
  2. DEXAMETHASONE. [Concomitant]
     Active Substance: DEXAMETHASONE
     Indication: MUSCULOSKELETAL DISCOMFORT
  3. VITAMIN C [Concomitant]
     Active Substance: ASCORBIC ACID
     Indication: DIZZINESS
     Dosage: 200 MG (+NORMAL SALINE 250 ML)
     Dates: start: 2019
  4. DEXAMETHASONE. [Concomitant]
     Active Substance: DEXAMETHASONE
     Indication: PYREXIA
  5. NORMAL SALINE [Concomitant]
     Active Substance: SODIUM CHLORIDE
     Indication: DIZZINESS
     Dosage: 250 ML
     Dates: start: 2019
  6. CLINDAMYCIN PHOSPHATE. [Suspect]
     Active Substance: CLINDAMYCIN PHOSPHATE
     Indication: DIZZINESS
     Dosage: 0.6 G
     Dates: start: 2019, end: 2019
  7. CLINDAMYCIN PHOSPHATE. [Suspect]
     Active Substance: CLINDAMYCIN PHOSPHATE
     Indication: PYREXIA
  8. VITAMIN C [Concomitant]
     Active Substance: ASCORBIC ACID
     Indication: PYREXIA
  9. VITAMIN C [Concomitant]
     Active Substance: ASCORBIC ACID
     Indication: MUSCULOSKELETAL DISCOMFORT
  10. CLINDAMYCIN PHOSPHATE. [Suspect]
     Active Substance: CLINDAMYCIN PHOSPHATE
     Indication: MUSCULOSKELETAL DISCOMFORT
  11. NORMAL SALINE [Concomitant]
     Active Substance: SODIUM CHLORIDE
     Indication: MUSCULOSKELETAL DISCOMFORT
  12. NORMAL SALINE [Concomitant]
     Active Substance: SODIUM CHLORIDE
     Indication: PYREXIA

REACTIONS (6)
  - Encephalopathy [Recovered/Resolved]
  - Agitation [Recovered/Resolved]
  - Hallucination, auditory [Recovered/Resolved]
  - Restlessness [Recovered/Resolved]
  - Abdominal discomfort [Recovered/Resolved]
  - Mental disorder [Recovered/Resolved]

NARRATIVE: CASE EVENT DATE: 2019
